FAERS Safety Report 4776365-8 (Version None)
Quarter: 2005Q3

REPORT INFORMATION
  Report Type: 
  Country: None (occurrence: None)
  Receive Date: 20050921
  Receipt Date: 20050907
  Transmission Date: 20060218
  Serious: Yes (Hospitalization)
  Sender: FDA-Public Use
  Company Number: JP_041205498

PATIENT
  Age: 75 Year
  Sex: Female
  Weight: 43 kg

DRUGS (3)
  1. EVISTA [Suspect]
     Indication: OSTEOPOROSIS POSTMENOPAUSAL
     Dosage: 60 MG/1 DAY
     Dates: start: 20041025, end: 20041117
  2. ALFAROL (ALFACALCIDOL) [Concomitant]
  3. ASPARA-CA (ASPARTATE CALCIUM) [Concomitant]

REACTIONS (1)
  - MYELODYSPLASTIC SYNDROME [None]
